FAERS Safety Report 18684109 (Version 1)
Quarter: 2020Q4

REPORT INFORMATION
  Report Type: Spontaneous
  Country: FR (occurrence: FR)
  Receive Date: 20201230
  Receipt Date: 20201230
  Transmission Date: 20210114
  Serious: Yes (Other)
  Sender: FDA-Public Use
  Company Number: FR-ROCHE-2740732

PATIENT
  Age: 5 Year
  Sex: Male
  Weight: 20.9 kg

DRUGS (1)
  1. CELLCEPT [Suspect]
     Active Substance: MYCOPHENOLATE MOFETIL\MYCOPHENOLATE MOFETIL HYDROCHLORIDE
     Indication: CONGENITAL NEPHROTIC SYNDROME
     Route: 048
     Dates: start: 20201012

REACTIONS (2)
  - Headache [Not Recovered/Not Resolved]
  - Aggression [Not Recovered/Not Resolved]
